FAERS Safety Report 8481548-X (Version None)
Quarter: 2012Q3

REPORT INFORMATION
  Report Type: 
  Country: None (occurrence: None)
  Receive Date: 20120702
  Receipt Date: 20120625
  Transmission Date: 20120928
  Serious: No
  Sender: FDA-Public Use
  Company Number: US-B.I. PHARMACEUTICALS,INC./RIDGEFIELD-2012-BP-14433BP

PATIENT
  Age: 74 Year
  Sex: Female

DRUGS (9)
  1. VITAMIN D WITH CALCIUM [Concomitant]
     Indication: SUPPLEMENTATION THERAPY
  2. GLUCOSAMINE CHONDROITIN [Concomitant]
     Indication: SUPPLEMENTATION THERAPY
     Route: 048
  3. IBUPROFEN [Concomitant]
     Indication: JOINT SWELLING
  4. SIMVASTATIN [Concomitant]
     Indication: BLOOD CHOLESTEROL INCREASED
     Dosage: 20 MG
     Route: 048
  5. ALPRAZOLAM [Concomitant]
     Indication: BACK PAIN
     Dosage: 0.25 MG
     Route: 048
  6. SPIRIVA [Suspect]
     Indication: CHRONIC OBSTRUCTIVE PULMONARY DISEASE
     Dosage: 18 MCG
     Route: 055
     Dates: start: 20120201, end: 20120617
  7. OMEPRAZOLE [Concomitant]
     Indication: PROPHYLAXIS
     Route: 048
  8. GABAPENTIN [Concomitant]
     Indication: BACK PAIN
     Dosage: 700 MG
     Route: 048
  9. IBUPROFEN [Concomitant]
     Indication: ARTHRALGIA
     Route: 048

REACTIONS (1)
  - DIARRHOEA [None]
